FAERS Safety Report 4630423-7 (Version None)
Quarter: 2005Q1

REPORT INFORMATION
  Report Type: 
  Country: None (occurrence: None)
  Receive Date: 20050329
  Receipt Date: 20050317
  Transmission Date: 20050727
  Serious: Yes (Life-Threatening, Hospitalization, Other)
  Sender: FDA-Public Use
  Company Number: HQWYE207009FEB05

PATIENT
  Age: 52 Year
  Sex: Male

DRUGS (7)
  1. NEUMEGA (OPRELVEKIN, INJECTION) [Suspect]
     Indication: PLATELET COUNT DECREASED
     Dosage: 5 MG DAILY SUBCUTANEUOS
     Route: 058
     Dates: start: 20050104, end: 20050101
  2. PEGINTRON (BEGINTERFERON ALFA 2B, [Suspect]
     Indication: HEPATITIS C
     Dosage: SUBCUTANEOUS
     Route: 058
     Dates: start: 20041206, end: 20050202
  3. REBETOL [Suspect]
     Indication: HEPATITIS C
     Dates: start: 20041206, end: 20050202
  4. ZOLOFT [Concomitant]
  5. TYLENOL [Concomitant]
  6. AMINO ACIDS (AMINO ACIDS) [Concomitant]
  7. PROTONIX [Concomitant]

REACTIONS (4)
  - ATRIAL FIBRILLATION [None]
  - HYPOKALAEMIA [None]
  - HYPOMAGNESAEMIA [None]
  - PLATELET COUNT DECREASED [None]
